FAERS Safety Report 20087034 (Version 1)
Quarter: 2021Q4

REPORT INFORMATION
  Report Type: Spontaneous
  Country: US (occurrence: None)
  Receive Date: 20211118
  Receipt Date: 20211118
  Transmission Date: 20220303
  Serious: Yes (Other)
  Sender: FDA-Public Use
  Company Number: None

PATIENT
  Age: 56 Year
  Sex: Male
  Weight: 80.1 kg

DRUGS (22)
  1. TOFACITINIB [Suspect]
     Active Substance: TOFACITINIB
     Indication: COVID-19
     Dosage: FREQUENCY : TWICE A DAY;?
     Route: 048
     Dates: start: 20211106, end: 20211111
  2. ATORVASTATIN [Concomitant]
     Active Substance: ATORVASTATIN
     Dates: start: 20201101
  3. AZITHROMYCIN ANHYDROUS [Concomitant]
     Active Substance: AZITHROMYCIN ANHYDROUS
     Dates: start: 20211104, end: 20211110
  4. BUSPIRONE [Concomitant]
     Active Substance: BUSPIRONE HYDROCHLORIDE
     Dates: start: 20201101
  5. cisatracurium IV [Concomitant]
     Dates: start: 20211108
  6. dexamethasone 6mg IVP daily [Concomitant]
     Dates: start: 20211101, end: 20211115
  7. docusate 100mg BID [Concomitant]
     Dates: start: 20211108
  8. fentanyl IV drip [Concomitant]
     Dates: start: 20211108
  9. furosemide 20 mg IVP x1 dose [Concomitant]
     Dates: start: 20211108
  10. furosemide 80 mg IVP x1 dose [Concomitant]
     Dates: start: 20211109
  11. heparin 5000 units SQ TID [Concomitant]
     Dates: start: 20211102
  12. sliding scale insulin lispro [Concomitant]
     Dates: start: 20211108
  13. oxcarbazapine 600mg PO daily [Concomitant]
     Dates: start: 20201101
  14. pantoprazole 40 mg daily [Concomitant]
     Dates: start: 20211102
  15. quetiapine 400mg daily at bedtime [Concomitant]
     Dates: start: 20211102, end: 20211108
  16. montelukast 10mg po daily [Concomitant]
     Dates: start: 20211103
  17. trihexyphenidyl 5mg daily [Concomitant]
     Dates: start: 20201101
  18. lorazepam 0.5mg IV push Q6H as needed [Concomitant]
     Dates: start: 20211104, end: 20211108
  19. linezolid 600mg daily [Concomitant]
     Dates: start: 20211105, end: 20211110
  20. midazolam IV drip [Concomitant]
     Dates: start: 20211108
  21. norepinephrine IV drip [Concomitant]
     Dates: start: 20211108
  22. levofloxacin 750mg daily [Concomitant]
     Dates: start: 20211108

REACTIONS (1)
  - Liver injury [None]

NARRATIVE: CASE EVENT DATE: 20211111
